FAERS Safety Report 11619481 (Version 4)
Quarter: 2016Q3

REPORT INFORMATION
  Report Type: Report from Study
  Country: IT (occurrence: IT)
  Receive Date: 20151012
  Receipt Date: 20160721
  Transmission Date: 20161109
  Serious: Yes (Hospitalization)
  Sender: FDA-Public Use
  Company Number: IT-BRISTOL-MYERS SQUIBB COMPANY-BMS-2015-066212

PATIENT
  Age: 69 Year
  Sex: Male

DRUGS (1)
  1. NIVOLUMAB [Suspect]
     Active Substance: NIVOLUMAB
     Indication: NON-SMALL CELL LUNG CANCER
     Dosage: 243 MG, UNK
     Route: 042
     Dates: start: 20150902, end: 20150917

REACTIONS (2)
  - Dyspnoea [Not Recovered/Not Resolved]
  - Mediastinal disorder [Unknown]

NARRATIVE: CASE EVENT DATE: 20150924
